FAERS Safety Report 22620774 (Version 1)
Quarter: 2023Q2

REPORT INFORMATION
  Report Type: Spontaneous
  Country: US (occurrence: None)
  Receive Date: 20230617
  Receipt Date: 20230617
  Transmission Date: 20230721
  Serious: Yes (Disabling)
  Sender: FDA-Public Use
  Company Number: None

PATIENT
  Age: 72 Year
  Sex: Female
  Weight: 47.7 kg

DRUGS (10)
  1. MIRALAX [Suspect]
     Active Substance: POLYETHYLENE GLYCOL 3350
     Indication: Anal injury
     Dosage: OTHER QUANTITY : 1 30 CC POWDER;?FREQUENCY : DAILY;?
     Route: 048
  2. Nebivalol [Concomitant]
  3. ASPIRIN [Concomitant]
     Active Substance: ASPIRIN
  4. EZETIMIBE [Concomitant]
     Active Substance: EZETIMIBE
  5. NITROGLYCERIN [Concomitant]
     Active Substance: NITROGLYCERIN
  6. cvs gummy vitamins [Concomitant]
  7. flax oil [Concomitant]
  8. vit. D drops [Concomitant]
  9. Natural Vitality magnesium [Concomitant]
  10. Calcium wafer [Concomitant]

REACTIONS (14)
  - Upper-airway cough syndrome [None]
  - Head discomfort [None]
  - Balance disorder [None]
  - Tachycardia [None]
  - Abdominal distension [None]
  - Dizziness [None]
  - Pruritus genital [None]
  - Weight decreased [None]
  - Skin disorder [None]
  - Head titubation [None]
  - Burning sensation [None]
  - Periorbital swelling [None]
  - Somnolence [None]
  - Urticaria [None]

NARRATIVE: CASE EVENT DATE: 20220331
